FAERS Safety Report 22196526 (Version 2)
Quarter: 2023Q2

REPORT INFORMATION
  Report Type: Spontaneous
  Country: IT (occurrence: IT)
  Receive Date: 20230411
  Receipt Date: 20230621
  Transmission Date: 20230722
  Serious: Yes (Hospitalization)
  Sender: FDA-Public Use
  Company Number: IT-ROCHE-3317568

PATIENT
  Age: 56 Year
  Sex: Male
  Weight: 74 kg

DRUGS (6)
  1. DOXORUBICIN [Suspect]
     Active Substance: DOXORUBICIN
     Indication: Diffuse large B-cell lymphoma
     Dosage: 50 MILLIGRAM/SQ. METER, EVERY 3 WEEKS(DAY 1 OUT OF  21 DAY CYCLE)
     Route: 042
     Dates: start: 20170216
  2. LENALIDOMIDE [Suspect]
     Active Substance: LENALIDOMIDE
     Indication: Diffuse large B-cell lymphoma
     Dosage: 15 MILLIGRAM
     Route: 042
     Dates: start: 20170216
  3. CYCLOPHOSPHAMIDE [Suspect]
     Active Substance: CYCLOPHOSPHAMIDE
     Indication: Diffuse large B-cell lymphoma
     Dosage: 750 MILLIGRAM/SQ. METER, ONCE A DAY (DAY 1 OUT OF  21 DAY CYCLE)
     Route: 042
     Dates: start: 20170216
  4. PREDNISONE [Suspect]
     Active Substance: PREDNISONE
     Indication: Diffuse large B-cell lymphoma
     Dosage: 100 MILLIGRAM, ONCE A DAY (1-5 DAYS OUT OF 21 DAY CYCLE)
     Route: 048
     Dates: start: 20170216, end: 20170220
  5. RITUXIMAB [Suspect]
     Active Substance: RITUXIMAB
     Indication: Diffuse large B-cell lymphoma
     Dosage: 375 MILLIGRAM/SQ. METER,EEVERY 3 WEEKS (DAY 1 OUT OF 21 DAY CYCLE)
     Route: 048
     Dates: start: 20170216
  6. VINCRISTINE [Suspect]
     Active Substance: VINCRISTINE
     Indication: Diffuse large B-cell lymphoma
     Dosage: 1.4 MILLIGRAM/SQ. METER, EVERY 3WEEKS  (DAY 1 OUT OF  21 DAY CYCLE)
     Route: 042
     Dates: start: 20170216

REACTIONS (2)
  - Haematotoxicity [Recovered/Resolved]
  - General physical health deterioration [Recovered/Resolved]

NARRATIVE: CASE EVENT DATE: 20170223
